FAERS Safety Report 15112147 (Version 6)
Quarter: 2019Q1

REPORT INFORMATION
  Report Type: Report from Study
  Country: JP (occurrence: JP)
  Receive Date: 20180705
  Receipt Date: 20190307
  Transmission Date: 20190417
  Serious: No
  Sender: FDA-Public Use
  Company Number: JP-AMGEN INC.-JPNCT2018068062

PATIENT
  Age: 44 Year
  Sex: Female
  Weight: 45.6 kg

DRUGS (23)
  1. ERENUMAB [Suspect]
     Active Substance: ERENUMAB
     Indication: MIGRAINE
     Dosage: UNK
     Route: 058
     Dates: start: 20160325, end: 20160809
  2. PREFILLED SYRINGE [Suspect]
     Active Substance: UNSPECIFIED INGREDIENT
     Indication: MIGRAINE
     Dosage: UNK
     Route: 058
     Dates: start: 20160908, end: 20180123
  3. MAXALT RAPIDISC [Concomitant]
     Active Substance: RIZATRIPTAN BENZOATE
     Indication: MIGRAINE
     Dosage: 10 MG, AS NECESSARY
     Route: 048
     Dates: start: 20150428
  4. MONONITRATE D^ISOSORBIDE [Concomitant]
     Indication: STOMATITIS
     Dosage: 1 UNK, AS NECESSARY
     Route: 048
     Dates: start: 20180509, end: 20180510
  5. BENET [Concomitant]
     Active Substance: RISEDRONATE SODIUM
     Indication: OSTEOPOROSIS
     Dosage: 17.5 MG, UNK
     Route: 048
     Dates: start: 20121218
  6. TRIAMCINOLONE ACETONIDE. [Concomitant]
     Active Substance: TRIAMCINOLONE ACETONIDE
     Indication: STOMATITIS
     Dosage: 1 UNK, ONCE
     Route: 062
     Dates: start: 20180511, end: 20180511
  7. CALCIUM PANTOTHENATE [Concomitant]
     Active Substance: CALCIUM PANTOTHENATE
     Indication: STOMATITIS
     Dosage: 1 UNK, AS NECESSARY
     Route: 048
     Dates: start: 20180509, end: 20180510
  8. SODIUM ASCORBATE [Concomitant]
     Active Substance: SODIUM ASCORBATE
     Indication: STOMATITIS
     Dosage: 1 UNK, ONCE
     Route: 048
     Dates: start: 20180511, end: 20180511
  9. TRYPTANOL [Concomitant]
     Active Substance: AMITRIPTYLINE
     Indication: MIGRAINE
     Dosage: 10 MG, QD
     Route: 048
     Dates: start: 20151030, end: 20180517
  10. FERROUS SODIUM CITRATE [Concomitant]
     Active Substance: SODIUM FERROUS CITRATE
     Indication: IRON DEFICIENCY ANAEMIA
     Dosage: 50 MG, BID
     Route: 048
     Dates: start: 20130628
  11. ETHYL AMINOBENZOATE [Concomitant]
     Indication: STOMATITIS
     Dosage: 1 UNK, AS NECESSARY
     Route: 062
     Dates: start: 20180509, end: 20180510
  12. VITAMIN B6 [Concomitant]
     Active Substance: PYRIDOXINE HYDROCHLORIDE
     Indication: STOMATITIS
     Dosage: 1 UNK, AS NECESSARY, 1 UNK, ONCE
     Route: 048
     Dates: start: 20180509, end: 20180511
  13. VITAMIN B1 [Concomitant]
     Active Substance: THIAMINE HYDROCHLORIDE
     Indication: STOMATITIS
     Dosage: 1 UNK, AS NECESSARY, 1 UNK, ONCE
     Route: 048
     Dates: start: 20180509, end: 20180511
  14. NICOTINAMIDE [Concomitant]
     Active Substance: NIACINAMIDE
     Indication: STOMATITIS
     Dosage: 1 UNK, AS NECESSARY
     Route: 048
     Dates: start: 20180509, end: 20180510
  15. DIBUCAINE HYDROCHLORIDE [Concomitant]
     Active Substance: DIBUCAINE HYDROCHLORIDE
     Indication: STOMATITIS
     Dosage: 1 UNK, AS NECESSARY
     Route: 062
     Dates: start: 20180509, end: 20180510
  16. CETYLPYRIDINIUM CHLORIDE. [Concomitant]
     Active Substance: CETYLPYRIDINIUM CHLORIDE
     Indication: STOMATITIS
     Dosage: 1 UNK, AS NECESSARY
     Route: 062
     Dates: start: 20180509, end: 20180510
  17. MENTHOL. [Concomitant]
     Active Substance: MENTHOL
     Indication: STOMATITIS
     Dosage: 1 UNK, AS NECESSARY
     Route: 062
     Dates: start: 20180509, end: 20180510
  18. AMG 334 [Suspect]
     Active Substance: ERENUMAB
     Indication: MIGRAINE
     Dosage: 70 MG, QMO
     Route: 058
     Dates: start: 20160908, end: 20180123
  19. BIOFERMIN [Concomitant]
     Active Substance: BACILLUS SUBTILIS\LACTOBACILLUS ACIDOPHILUS\STREPTOCOCCUS FAECAIS
     Indication: DIARRHOEA
  20. RIBOFLAVIN SODIUM PHOSPHATE [Concomitant]
     Active Substance: RIBOFLAVIN 5^-PHOSPHATE SODIUM
     Indication: STOMATITIS
     Dosage: 1 UNK, AS NECESSARY
     Route: 048
     Dates: start: 20180509, end: 20180510
  21. GAMMA-ORYZANOL [Concomitant]
     Active Substance: GAMMA ORYZANOL
     Indication: STOMATITIS
     Dosage: 1 UNK, AS NECESSARY
     Route: 048
     Dates: start: 20180509, end: 20180510
  22. NAIXAN [Concomitant]
     Active Substance: NAPROXEN SODIUM
     Indication: MIGRAINE
     Dosage: 300 MG, AS NECESSARY
     Route: 048
     Dates: start: 20130416
  23. BIOFERMIN [Concomitant]
     Active Substance: BACILLUS SUBTILIS\LACTOBACILLUS ACIDOPHILUS\STREPTOCOCCUS FAECAIS
     Indication: DIARRHOEA
     Dosage: 1 UNK, ONCE
     Route: 048
     Dates: start: 20180430, end: 20180430

REACTIONS (1)
  - Maternal exposure during pregnancy [Unknown]
